FAERS Safety Report 5144883-9 (Version None)
Quarter: 2006Q4

REPORT INFORMATION
  Report Type: 
  Country: None (occurrence: None)
  Receive Date: 20061107
  Receipt Date: 20061023
  Transmission Date: 20070319
  Serious: Yes (Life-Threatening)
  Sender: FDA-Public Use
  Company Number: DE-BRISTOL-MYERS SQUIBB COMPANY-13554878

PATIENT
  Age: 68 Year
  Sex: Female

DRUGS (5)
  1. KARVEZIDE TABS 300MG/12.5MG [Suspect]
     Route: 048
  2. BISOPROLOL FUMARATE [Suspect]
     Route: 048
  3. CORIFEO [Suspect]
     Route: 048
  4. ALLOPURINOL [Suspect]
     Route: 048
  5. SIMVASTATIN [Suspect]
     Route: 048

REACTIONS (1)
  - SUICIDAL IDEATION [None]
